FAERS Safety Report 6516943-9 (Version None)
Quarter: 2009Q4

REPORT INFORMATION
  Report Type: 
  Country: None (occurrence: None)
  Receive Date: 20091223
  Receipt Date: 20091209
  Transmission Date: 20100525
  Serious: Yes (Other)
  Sender: FDA-Public Use
  Company Number: BR-PFIZER INC-2009230073

PATIENT
  Age: 75 Year
  Sex: Male
  Weight: 90 kg

DRUGS (4)
  1. NEURONTIN [Suspect]
     Indication: DEMYELINATION
     Dosage: 300 MG, 2X/DAY
     Route: 048
     Dates: start: 20090301
  2. SYMBICORT [Concomitant]
     Indication: ASTHMA
     Dosage: 1 APPLICATION, TWICE DAILY
     Dates: start: 20040101
  3. VENALOT [Concomitant]
     Indication: POOR PERIPHERAL CIRCULATION
     Dosage: 1 TABLET, EVERY 8 HOURS
     Dates: start: 20091001
  4. ALLOPURINOL [Concomitant]
     Indication: GOUT
     Dosage: 100 MG, 1X/DAY
     Route: 048
     Dates: start: 19940101

REACTIONS (5)
  - BLOOD CREATINE PHOSPHOKINASE INCREASED [None]
  - DEMYELINATION [None]
  - ERECTILE DYSFUNCTION [None]
  - PROSTATIC SPECIFIC ANTIGEN DECREASED [None]
  - SOMNOLENCE [None]
